FAERS Safety Report 15272988 (Version 1)
Quarter: 2018Q3

REPORT INFORMATION
  Report Type: Spontaneous
  Country: US (occurrence: US)
  Receive Date: 20180813
  Receipt Date: 20180813
  Transmission Date: 20181010
  Serious: No
  Sender: FDA-Public Use
  Company Number: US-PURDUE-USA-2018-0143581

PATIENT
  Age: 47 Year
  Sex: Male

DRUGS (1)
  1. BUTRANS [Suspect]
     Active Substance: BUPRENORPHINE
     Indication: PRODUCT USED FOR UNKNOWN INDICATION
     Dosage: 15 MCG/HR, WEEKLY
     Route: 062
     Dates: start: 20161028, end: 20180509

REACTIONS (7)
  - Application site pruritus [Not Recovered/Not Resolved]
  - Application site pain [Unknown]
  - Application site erythema [Unknown]
  - Application site vesicles [Unknown]
  - Application site infection [Not Recovered/Not Resolved]
  - Application site odour [Not Recovered/Not Resolved]
  - Application site rash [Not Recovered/Not Resolved]
